FAERS Safety Report 10636081 (Version 1)
Quarter: 2014Q4

REPORT INFORMATION
  Report Type: Spontaneous
  Country: FR (occurrence: LU)
  Receive Date: 20141205
  Receipt Date: 20141205
  Transmission Date: 20150529
  Serious: Yes (Disabling)
  Sender: FDA-Public Use
  Company Number: LU-ALLERGAN-1424562US

PATIENT
  Sex: Female

DRUGS (2)
  1. LIQUIFILM TEARS, COLLYRE [Suspect]
     Active Substance: POLYVINYL ALCOHOL
     Indication: PRODUCT USED FOR UNKNOWN INDICATION
     Route: 047
  2. ARTELAC [Suspect]
     Active Substance: HYPROMELLOSES
     Indication: PRODUCT USED FOR UNKNOWN INDICATION

REACTIONS (2)
  - Corneal deposits [Not Recovered/Not Resolved]
  - Corneal opacity [Not Recovered/Not Resolved]
